FAERS Safety Report 10395651 (Version 12)
Quarter: 2019Q4

REPORT INFORMATION
  Report Type: Report from Study
  Country: CA (occurrence: CA)
  Receive Date: 20140820
  Receipt Date: 20191111
  Transmission Date: 20200122
  Serious: Yes (Other)
  Sender: FDA-Public Use
  Company Number: CA-ROCHE-1191893

PATIENT
  Age: 51 Year
  Sex: Male
  Weight: 59.9 kg

DRUGS (11)
  1. ARAVA [Concomitant]
     Active Substance: LEFLUNOMIDE
  2. VITAMIN A [RETINOL] [Concomitant]
     Active Substance: RETINOL
  3. ACETAMINOPHEN. [Concomitant]
     Active Substance: ACETAMINOPHEN
     Indication: PREMEDICATION
     Route: 048
     Dates: start: 20130205
  4. COUMADIN [Concomitant]
     Active Substance: WARFARIN SODIUM
  5. METHYLPREDNISOLONE. [Concomitant]
     Active Substance: METHYLPREDNISOLONE
     Indication: PREMEDICATION
     Route: 042
     Dates: start: 20130205
  6. PANTOPRAZOLE [Concomitant]
     Active Substance: PANTOPRAZOLE
  7. RITUXAN [Suspect]
     Active Substance: RITUXIMAB
     Indication: RHEUMATOID ARTHRITIS
     Dosage: DATE OF THE LAST DOSE RECIEVED PRIOR TO THE ADVERSE EVENT: 19/FEB/2013
     Route: 042
     Dates: start: 20130205, end: 20161007
  8. RITUXAN [Suspect]
     Active Substance: RITUXIMAB
     Dosage: ON 11/MAR/2015, PATIENT RECEIVED MOST RECENT DOSE OF RITUXIMAB.?DATE OF LAST RITUXIMAB INFUSION: 21/
     Route: 042
     Dates: start: 20130219
  9. PLAQUENIL [Concomitant]
     Active Substance: HYDROXYCHLOROQUINE SULFATE
  10. TYLENOL [Concomitant]
     Active Substance: ACETAMINOPHEN
  11. DIPHENHYDRAMINE HCL [Concomitant]
     Active Substance: DIPHENHYDRAMINE HYDROCHLORIDE
     Indication: PREMEDICATION
     Route: 048
     Dates: start: 20130205

REACTIONS (16)
  - Osteopenia [Not Recovered/Not Resolved]
  - Road traffic accident [Unknown]
  - Rheumatoid arthritis [Not Recovered/Not Resolved]
  - Back pain [Recovering/Resolving]
  - Skin laceration [Recovered/Resolved]
  - Influenza [Recovered/Resolved]
  - Pyrexia [Unknown]
  - Cough [Recovered/Resolved]
  - Heart rate irregular [Unknown]
  - Arthralgia [Recovering/Resolving]
  - Cardiac failure [Unknown]
  - Skin abrasion [Recovered/Resolved]
  - Arthralgia [Not Recovered/Not Resolved]
  - Thrombosis [Unknown]
  - Fatigue [Recovered/Resolved]
  - Furuncle [Recovered/Resolved]

NARRATIVE: CASE EVENT DATE: 20130809
